FAERS Safety Report 10795456 (Version 1)
Quarter: 2015Q1

REPORT INFORMATION
  Report Type: Spontaneous
  Country: US (occurrence: US)
  Receive Date: 20150215
  Receipt Date: 20150215
  Transmission Date: 20150721
  Serious: Yes (Death, Hospitalization, Other)
  Sender: FDA-Public Use
  Company Number: US-ACTAVIS-2015-01828

PATIENT
  Age: 77 Year
  Sex: Female

DRUGS (2)
  1. LIDOCAINE HYDROCHLORIDE (WATSON LABORATORIES) [Suspect]
     Active Substance: LIDOCAINE HYDROCHLORIDE
     Indication: WRONG DRUG ADMINISTERED
  2. LIDOCAINE HYDROCHLORIDE (WATSON LABORATORIES) [Suspect]
     Active Substance: LIDOCAINE HYDROCHLORIDE
     Indication: HYPERKALAEMIA
     Dosage: 40-100MG
     Route: 040

REACTIONS (6)
  - Cardiac arrest [Fatal]
  - Electrocardiogram QRS complex prolonged [Not Recovered/Not Resolved]
  - Unresponsive to stimuli [Not Recovered/Not Resolved]
  - Bradycardia [Not Recovered/Not Resolved]
  - Seizure [Not Recovered/Not Resolved]
  - Wrong drug administered [Fatal]
